FAERS Safety Report 5645782-6 (Version None)
Quarter: 2008Q1

REPORT INFORMATION
  Report Type: 
  Country: None (occurrence: None)
  Receive Date: 20080131
  Receipt Date: 20071212
  Transmission Date: 20080703
  Serious: No
  Sender: FDA-Public Use
  Company Number: 163-21880-07120854

PATIENT
  Sex: Female

DRUGS (3)
  1. REVLIMID [Suspect]
     Indication: MULTIPLE MYELOMA
     Dosage: 20 MG, 2 IN 1 D, ORAL; 10 MG, DAILY X 21 DAYS, ORAL 5MG-10MG, DAILY, ORAL
     Route: 048
     Dates: start: 20070424, end: 20070701
  2. REVLIMID [Suspect]
     Indication: MULTIPLE MYELOMA
     Dosage: 20 MG, 2 IN 1 D, ORAL; 10 MG, DAILY X 21 DAYS, ORAL 5MG-10MG, DAILY, ORAL
     Route: 048
     Dates: start: 20070723, end: 20071201
  3. REVLIMID [Suspect]
     Indication: MULTIPLE MYELOMA
     Dosage: 20 MG, 2 IN 1 D, ORAL; 10 MG, DAILY X 21 DAYS, ORAL 5MG-10MG, DAILY, ORAL
     Route: 048
     Dates: start: 20071213

REACTIONS (4)
  - BONE PAIN [None]
  - NEOPLASM PROGRESSION [None]
  - TUMOUR MARKER INCREASED [None]
  - WHITE BLOOD CELL COUNT DECREASED [None]
